FAERS Safety Report 9858690 (Version 1)
Quarter: 2014Q1

REPORT INFORMATION
  Report Type: Spontaneous
  Country: US (occurrence: US)
  Receive Date: 20140131
  Receipt Date: 20140131
  Transmission Date: 20141002
  Serious: No
  Sender: FDA-Public Use
  Company Number: US-009507513-1401USA014777

PATIENT
  Sex: Female
  Weight: 78.5 kg

DRUGS (7)
  1. CLARITIN [Suspect]
     Indication: HYPERSENSITIVITY
     Dosage: 10 MG, QD
     Route: 048
  2. CLARITIN [Suspect]
     Indication: SINUS OPERATION
  3. DEPAKOTE ER [Concomitant]
     Indication: CONVULSION
     Dosage: UNK, UNKNOWN
  4. LOSARTAN POTASSIUM [Concomitant]
     Indication: BLOOD PRESSURE
     Dosage: UNK, UNKNOWN
  5. CHOLECALCIFEROL [Concomitant]
     Indication: VITAMIN D DEFICIENCY
     Dosage: 400 IU, QD
  6. CENTRUM SILVER [Concomitant]
     Indication: ROUTINE HEALTH MAINTENANCE
     Dosage: UNK, UNKNOWN
  7. VITAMIN E [Concomitant]
     Indication: ROUTINE HEALTH MAINTENANCE
     Dosage: UNK, UNKNOWN

REACTIONS (1)
  - Drug effect decreased [Unknown]
